FAERS Safety Report 17976936 (Version 1)
Quarter: 2020Q3

REPORT INFORMATION
  Report Type: Spontaneous
  Country: US (occurrence: US)
  Receive Date: 20200702
  Receipt Date: 20200702
  Transmission Date: 20201103
  Serious: Yes (Hospitalization, Other)
  Sender: FDA-Public Use
  Company Number: US-ASTRAZENECA-2020SE82064

PATIENT
  Age: 22856 Day
  Sex: Female
  Weight: 76.2 kg

DRUGS (14)
  1. PANTOPRAZOLE [Concomitant]
     Active Substance: PANTOPRAZOLE
     Indication: BARRETT^S OESOPHAGUS
  2. ATENOLOL. [Suspect]
     Active Substance: ATENOLOL
     Route: 065
     Dates: start: 20200522
  3. BRILINTA [Suspect]
     Active Substance: TICAGRELOR
     Indication: STENT PLACEMENT
     Route: 048
     Dates: start: 20200510
  4. METOPROLOL SUCCINATE. [Suspect]
     Active Substance: METOPROLOL SUCCINATE
     Indication: BLOOD PRESSURE MEASUREMENT
     Route: 048
     Dates: start: 20200526
  5. OMEPRAZOLE RX [Suspect]
     Active Substance: OMEPRAZOLE
     Route: 048
  6. PRAVASTATIN. [Concomitant]
     Active Substance: PRAVASTATIN
     Indication: BLOOD CHOLESTEROL
  7. KRILL OIL [Concomitant]
     Active Substance: DIETARY SUPPLEMENT\KRILL OIL
  8. AMIODARONE [Concomitant]
     Active Substance: AMIODARONE
     Indication: HEART RATE IRREGULAR
     Dates: start: 20200511
  9. ATENOLOL. [Suspect]
     Active Substance: ATENOLOL
     Route: 065
     Dates: end: 20200524
  10. PANTOPRAZOLE [Concomitant]
     Active Substance: PANTOPRAZOLE
     Indication: GASTROOESOPHAGEAL REFLUX DISEASE
  11. ALPRAZOLAM. [Concomitant]
     Active Substance: ALPRAZOLAM
     Indication: ANXIETY
  12. ATENOLOL. [Suspect]
     Active Substance: ATENOLOL
     Route: 065
     Dates: start: 20200523
  13. ASPIRIN. [Concomitant]
     Active Substance: ASPIRIN
  14. TYLENOL [Concomitant]
     Active Substance: ACETAMINOPHEN

REACTIONS (12)
  - Chest pain [Recovering/Resolving]
  - Appendix adenoma [Unknown]
  - Feeling abnormal [Unknown]
  - Cardiac stress test abnormal [Unknown]
  - Dyspnoea [Recovered/Resolved]
  - Palpitations [Not Recovered/Not Resolved]
  - Choking [Recovered/Resolved]
  - Anxiety [Not Recovered/Not Resolved]
  - Oropharyngeal discomfort [Unknown]
  - Hiatus hernia [Unknown]
  - Lymphadenopathy [Recovered/Resolved]
  - Tremor [Not Recovered/Not Resolved]

NARRATIVE: CASE EVENT DATE: 20200510
